FAERS Safety Report 19531636 (Version 2)
Quarter: 2021Q3

REPORT INFORMATION
  Report Type: Spontaneous
  Country: JP (occurrence: JP)
  Receive Date: 20210713
  Receipt Date: 20210811
  Transmission Date: 20211014
  Serious: Yes (Other)
  Sender: FDA-Public Use
  Company Number: NVSJ2021JP010561

PATIENT
  Age: 77 Year
  Sex: Male

DRUGS (1)
  1. NEORAL [Suspect]
     Active Substance: CYCLOSPORINE
     Indication: MYASTHENIA GRAVIS
     Dosage: UNK
     Route: 048
     Dates: end: 20210803

REACTIONS (2)
  - Renal impairment [Not Recovered/Not Resolved]
  - Product use in unapproved indication [Unknown]
